FAERS Safety Report 8518120 (Version 7)
Quarter: 2013Q3

REPORT INFORMATION
  Report Type: Spontaneous
  Country: US (occurrence: US)
  Receive Date: 20120417
  Receipt Date: 20130912
  Transmission Date: 20140515
  Serious: No
  Sender: FDA-Public Use
  Company Number: US-ASTRAZENECA-2011SE45574

PATIENT
  Age: 53 Year
  Sex: Male
  Weight: 75.8 kg

DRUGS (12)
  1. NEXIUM [Suspect]
     Indication: ABDOMINAL DISCOMFORT
     Route: 048
  2. NEXIUM [Suspect]
     Indication: ABDOMINAL PAIN UPPER
     Route: 048
  3. NEXIUM [Suspect]
     Indication: VOMITING
     Route: 048
  4. NEXIUM [Suspect]
     Indication: GASTROOESOPHAGEAL REFLUX DISEASE
     Route: 048
  5. NEXIUM [Suspect]
     Indication: ULCER
     Route: 048
  6. NEXIUM [Suspect]
     Indication: ABDOMINAL DISCOMFORT
     Route: 048
  7. NEXIUM [Suspect]
     Indication: ABDOMINAL PAIN UPPER
     Route: 048
  8. NEXIUM [Suspect]
     Indication: VOMITING
     Route: 048
  9. NEXIUM [Suspect]
     Indication: GASTROOESOPHAGEAL REFLUX DISEASE
     Route: 048
  10. NEXIUM [Suspect]
     Indication: ULCER
     Route: 048
  11. OMEPRAZOLE [Suspect]
     Indication: GASTROOESOPHAGEAL REFLUX DISEASE
     Route: 048
  12. OMEPRAZOLE [Suspect]
     Indication: ULCER
     Route: 048

REACTIONS (12)
  - Asthenia [Unknown]
  - Gastrooesophageal reflux disease [Unknown]
  - Aphagia [Unknown]
  - Weight increased [Unknown]
  - Ulcer [Unknown]
  - Weight decreased [Unknown]
  - Abdominal pain upper [Unknown]
  - Vomiting [Unknown]
  - Off label use [Unknown]
  - Drug dose omission [Unknown]
  - Intentional drug misuse [Unknown]
  - Drug ineffective [Unknown]
